FAERS Safety Report 17361159 (Version 2)
Quarter: 2020Q1

REPORT INFORMATION
  Report Type: Report from Study
  Country: DE (occurrence: DE)
  Receive Date: 20200203
  Receipt Date: 20200212
  Transmission Date: 20200409
  Serious: Yes (Other)
  Sender: FDA-Public Use
  Company Number: DE-PFIZER INC-2020040213

PATIENT
  Sex: Female
  Weight: 89 kg

DRUGS (8)
  1. OMEPRAZOL [Concomitant]
     Active Substance: OMEPRAZOLE
     Dosage: UNK
     Dates: start: 200809
  2. ETHINYLESTRADIOL/LEVONORGESTREL [Suspect]
     Active Substance: ETHINYL ESTRADIOL\LEVONORGESTREL
     Dosage: UNK
  3. VITAMIN B COMPLEX [Concomitant]
     Active Substance: CYANOCOBALAMIN\DEXPANTHENOL\NIACINAMIDE\PYRIDOXINE HYDROCHLORIDE\RIBOFLAVIN 5^-PHOSPHATE SODIUM\THIAMINE HYDROCHLORIDE\VITAMIN B COMPLEX
     Dosage: UNK
  4. L-THYROXIN [LEVOTHYROXINE] [Concomitant]
     Active Substance: LEVOTHYROXINE SODIUM
     Dosage: UNK
     Dates: start: 200511
  5. FOLSAEURE [Concomitant]
     Active Substance: FOLIC ACID
     Dosage: UNK
  6. DEKRISTOL [Concomitant]
     Active Substance: CHOLECALCIFEROL
  7. CERAZETTE [CEFALORIDINE] [Suspect]
     Active Substance: CEPHALORIDINE
     Indication: CONTRACEPTION
     Dosage: UNK
     Dates: start: 199706
  8. CALCIUM [Concomitant]
     Active Substance: CALCIUM
     Dosage: UNK

REACTIONS (1)
  - Venous thrombosis [Unknown]

NARRATIVE: CASE EVENT DATE: 201908
